FAERS Safety Report 20847462 (Version 1)
Quarter: 2022Q2

REPORT INFORMATION
  Report Type: Spontaneous
  Country: US (occurrence: US)
  Receive Date: 20220519
  Receipt Date: 20220519
  Transmission Date: 20220721
  Serious: No
  Sender: FDA-Public Use
  Company Number: US-SUN PHARMACEUTICAL INDUSTRIES LTD-2022R1-332333

PATIENT
  Age: 15 Year
  Sex: Male

DRUGS (1)
  1. ABSORICA LD [Suspect]
     Active Substance: ISOTRETINOIN
     Indication: Product used for unknown indication
     Dosage: UNK UNK, BID
     Route: 048
     Dates: start: 20220222

REACTIONS (6)
  - Chapped lips [Unknown]
  - Lip haemorrhage [Unknown]
  - Lip dry [Unknown]
  - Nausea [Unknown]
  - Abdominal discomfort [Unknown]
  - Sunburn [Unknown]

NARRATIVE: CASE EVENT DATE: 20220326
